FAERS Safety Report 4880744-8 (Version None)
Quarter: 2006Q1

REPORT INFORMATION
  Report Type: 
  Country: None (occurrence: None)
  Receive Date: 20060111
  Receipt Date: 20051012
  Transmission Date: 20060701
  Serious: No
  Sender: FDA-Public Use
  Company Number: 2005S1000225

PATIENT

DRUGS (1)
  1. CUBICIN [Suspect]
     Dosage: 250 MG; TIW;IV
     Route: 042
     Dates: start: 20050101, end: 20051012

REACTIONS (2)
  - CONFUSIONAL STATE [None]
  - TRANSIENT ISCHAEMIC ATTACK [None]
